FAERS Safety Report 8502145-3 (Version None)
Quarter: 2012Q3

REPORT INFORMATION
  Report Type: 
  Country: None (occurrence: None)
  Receive Date: 20120711
  Receipt Date: 20120705
  Transmission Date: 20120928
  Serious: Yes (Other)
  Sender: FDA-Public Use
  Company Number: GR-JNJFOC-20120407611

PATIENT
  Sex: Female

DRUGS (4)
  1. ANTIEPILEPTIC MEDICATION [Concomitant]
     Indication: EPILEPSY
     Route: 065
  2. STELARA [Suspect]
     Indication: PSORIASIS
     Route: 058
  3. STELARA [Suspect]
     Route: 058
     Dates: end: 20120413
  4. UNSPECIFIED MEDICATION FOR HYPOTHYROIDISM [Concomitant]
     Indication: HYPOTHYROIDISM
     Route: 065

REACTIONS (2)
  - OEDEMA PERIPHERAL [None]
  - SWELLING FACE [None]
